FAERS Safety Report 9722864 (Version 1)
Quarter: 2013Q4

REPORT INFORMATION
  Report Type: Spontaneous
  Country: ES (occurrence: ES)
  Receive Date: 20131202
  Receipt Date: 20131202
  Transmission Date: 20140711
  Serious: Yes (Hospitalization, Other)
  Sender: FDA-Public Use
  Company Number: ES-009507513-1311ESP012374

PATIENT
  Age: 21 Year
  Sex: Male

DRUGS (2)
  1. ALENDRONATE SODIUM [Suspect]
     Indication: OSTEOGENESIS IMPERFECTA
     Dosage: 40 MG, QW UNTIL AGE OF 16
     Route: 048
  2. ALENDRONATE SODIUM [Suspect]
     Dosage: 20 MG, QW UNTIL THE 18 YEARS OLD
     Route: 048

REACTIONS (2)
  - Intramedullary rod insertion [Recovered/Resolved]
  - Atypical femur fracture [Recovered/Resolved]
